FAERS Safety Report 24572697 (Version 1)
Quarter: 2024Q4

REPORT INFORMATION
  Report Type: Spontaneous
  Country: US (occurrence: US)
  Receive Date: 20241101
  Receipt Date: 20241101
  Transmission Date: 20250115
  Serious: No
  Sender: Tarsus Pharmaceuticals
  Company Number: US-TARSUS PHARMACEUTICALS-TSP-US-2024-000344

PATIENT
  Age: 70 Year
  Sex: Female

DRUGS (3)
  1. XDEMVY [Suspect]
     Active Substance: LOTILANER
     Indication: Demodex blepharitis
     Dosage: 1 DROP, BID (EVERY 12 HOURS FOR 6 WEEKS INTO BOTH EYES)
     Route: 047
     Dates: start: 20240726, end: 20240802
  2. ROSUVASTATIN [Concomitant]
     Active Substance: ROSUVASTATIN
     Indication: Product used for unknown indication
     Dosage: UNK
     Route: 065
  3. LEVOTHYROXINE [Concomitant]
     Active Substance: LEVOTHYROXINE
     Indication: Product used for unknown indication
     Dosage: UNK
     Route: 065

REACTIONS (3)
  - Eye pain [Unknown]
  - Eye inflammation [Unknown]
  - Hordeolum [Recovered/Resolved]

NARRATIVE: CASE EVENT DATE: 20240729
